FAERS Safety Report 18257952 (Version 2)
Quarter: 2023Q4

REPORT INFORMATION
  Report Type: Spontaneous
  Country: US (occurrence: US)
  Receive Date: 20200911
  Receipt Date: 20231024
  Transmission Date: 20240110
  Serious: Yes (Other)
  Sender: FDA-Public Use
  Company Number: US-PFIZER INC-2020350309

PATIENT
  Age: 59 Year
  Sex: Male
  Weight: 125.17 kg

DRUGS (6)
  1. XELJANZ [Suspect]
     Active Substance: TOFACITINIB CITRATE
     Indication: Rheumatoid arthritis
     Dosage: 5 MG, 2X/DAY
     Route: 048
     Dates: start: 201312
  2. TYLENOL [Concomitant]
     Active Substance: ACETAMINOPHEN
     Dosage: 325 MG
  3. ASPIRIN [Concomitant]
     Active Substance: ASPIRIN
     Dosage: 325 MG
  4. PIROXICAM [Concomitant]
     Active Substance: PIROXICAM
     Dosage: 20 MG
  5. GABAPENTIN [Concomitant]
     Active Substance: GABAPENTIN
     Dosage: 100 MG
  6. METHOTREXATE [Concomitant]
     Active Substance: METHOTREXATE
     Dosage: 2.5 MG

REACTIONS (3)
  - Anal fistula infection [Recovering/Resolving]
  - Abscess [Recovered/Resolved]
  - Tooth abscess [Recovering/Resolving]

NARRATIVE: CASE EVENT DATE: 20200101
